FAERS Safety Report 9177401 (Version 2)
Quarter: 2013Q1

REPORT INFORMATION
  Report Type: Spontaneous
  Country: US (occurrence: US)
  Receive Date: 20130321
  Receipt Date: 20130321
  Transmission Date: 20140127
  Serious: No
  Sender: FDA-Public Use
  Company Number: US-MYLANLABS-2012S1010477

PATIENT
  Age: 34 Year
  Sex: Female

DRUGS (5)
  1. TAMOXIFEN CITRATE [Suspect]
     Indication: BREAST CANCER
     Route: 048
     Dates: start: 20120509, end: 20120514
  2. TAMOXIFEN CITRATE [Suspect]
     Indication: BREAST CANCER
     Route: 048
     Dates: start: 20120618
  3. FEXOFENADINE HYDROCHLORIDE [Suspect]
     Indication: MULTIPLE ALLERGIES
     Route: 048
     Dates: start: 201203, end: 20120517
  4. ALLEGRA [Concomitant]
  5. MULTIVITAMIN [Concomitant]

REACTIONS (2)
  - Dermatitis allergic [Recovered/Resolved]
  - Gingival swelling [Recovered/Resolved]
